FAERS Safety Report 7153277-6 (Version None)
Quarter: 2010Q4

REPORT INFORMATION
  Report Type: 
  Country: None (occurrence: None)
  Receive Date: 20101130
  Receipt Date: 20101031
  Transmission Date: 20110411
  Serious: Yes (Hospitalization)
  Sender: FDA-Public Use
  Company Number: 54973

PATIENT
  Age: 17 Month
  Sex: Female
  Weight: 13.1543 kg

DRUGS (4)
  1. HYLAND'S TEETHING TABLETS [Suspect]
     Indication: TEETHING
     Dosage: 3 TABS X 1-3 X/DAY
  2. MOTRIN [Concomitant]
  3. ACETAMINOPHEN [Concomitant]
  4. BENADRYL [Concomitant]

REACTIONS (1)
  - FEBRILE CONVULSION [None]
